FAERS Safety Report 5363551-1 (Version None)
Quarter: 2007Q2

REPORT INFORMATION
  Report Type: 
  Country: None (occurrence: None)
  Receive Date: 20070618
  Receipt Date: 20070618
  Transmission Date: 20071010
  Serious: Yes (Other)
  Sender: FDA-Public Use
  Company Number: None

PATIENT
  Age: 47 Year
  Sex: Female
  Weight: 63.5036 kg

DRUGS (1)
  1. OMEPRAZOLE [Suspect]
     Indication: GASTROOESOPHAGEAL REFLUX DISEASE
     Dosage: 20MG  ONCE A DAY PO
     Route: 048
     Dates: start: 20070615, end: 20070617

REACTIONS (4)
  - BURNING SENSATION [None]
  - PRURITUS [None]
  - RASH [None]
  - SWELLING FACE [None]
